FAERS Safety Report 18050146 (Version 1)
Quarter: 2020Q3

REPORT INFORMATION
  Report Type: Spontaneous
  Country: US (occurrence: US)
  Receive Date: 20200721
  Receipt Date: 20200721
  Transmission Date: 20201103
  Serious: No
  Sender: FDA-Public Use
  Company Number: US-BAYER-2020-143366

PATIENT
  Age: 58 Year
  Sex: Female
  Weight: 76.01 kg

DRUGS (2)
  1. NIMESULIDE [Concomitant]
     Active Substance: NIMESULIDE
     Dosage: UNK
     Dates: start: 1993
  2. ALEVE PM [Suspect]
     Active Substance: DIPHENHYDRAMINE HYDROCHLORIDE\NAPROXEN SODIUM
     Dosage: UNK
     Dates: start: 1993

REACTIONS (1)
  - Drug hypersensitivity [Unknown]
